FAERS Safety Report 14314634 (Version 1)
Quarter: 2017Q4

REPORT INFORMATION
  Report Type: Spontaneous
  Country: US (occurrence: US)
  Receive Date: 20171221
  Receipt Date: 20171221
  Transmission Date: 20180321
  Serious: Yes (Other)
  Sender: FDA-Public Use
  Company Number: US-TORRENT-00005597

PATIENT
  Age: 27 Year
  Sex: Male

DRUGS (1)
  1. MINOCYCLINE [Suspect]
     Active Substance: MINOCYCLINE\MINOCYCLINE HYDROCHLORIDE
     Indication: ACNE
     Dosage: FOR ABOUT A YEAR

REACTIONS (2)
  - Myelopathy [Recovered/Resolved]
  - Vasculitis [Recovered/Resolved]
